FAERS Safety Report 14954692 (Version 1)
Quarter: 2018Q2

REPORT INFORMATION
  Report Type: Not Available
  Country: US (occurrence: US)
  Receive Date: 20180530
  Receipt Date: 20180530
  Transmission Date: 20180711
  Serious: No
  Sender: FDA-Public Use
  Company Number: US-NEUROCRINE BIOSCIENCES INC.-2018NBI01537

PATIENT
  Sex: Female

DRUGS (4)
  1. INGREZZA [Suspect]
     Active Substance: VALBENAZINE
     Indication: DYSKINESIA
     Route: 048
     Dates: start: 20180430
  2. XANAX [Concomitant]
     Active Substance: ALPRAZOLAM
  3. AMBIEN [Concomitant]
     Active Substance: ZOLPIDEM TARTRATE
  4. EFFEXOR [Concomitant]
     Active Substance: VENLAFAXINE HYDROCHLORIDE

REACTIONS (1)
  - Restlessness [Not Recovered/Not Resolved]
